FAERS Safety Report 8187605-X (Version None)
Quarter: 2012Q1

REPORT INFORMATION
  Report Type: 
  Country: None (occurrence: None)
  Receive Date: 20120306
  Receipt Date: 20120227
  Transmission Date: 20120608
  Serious: Yes (Hospitalization, Other)
  Sender: FDA-Public Use
  Company Number: PHHY2012RO016750

PATIENT
  Age: 51 Year
  Sex: Male

DRUGS (8)
  1. PROGRAF [Suspect]
     Dosage: 40 MG, QD
  2. CEFTRIAXONE [Concomitant]
  3. MOXIFLOXACIN [Concomitant]
  4. MYCOPHENOLATE MOFETIL (CELLCEPT) [Suspect]
     Dosage: 2 G, QD
  5. METOPROLOL SUCCINATE [Concomitant]
     Indication: HYPERTENSION
  6. PREDNISONE TAB [Suspect]
     Dosage: 10 MG, QD
  7. SIROLIMUS [Concomitant]
  8. FLUCONAZOLE [Concomitant]

REACTIONS (18)
  - ANGINA PECTORIS [None]
  - HYPERTENSION [None]
  - ATRIAL FIBRILLATION [None]
  - PNEUMONIA [None]
  - DYSPNOEA [None]
  - PYREXIA [None]
  - WEIGHT DECREASED [None]
  - RESPIRATORY FAILURE [None]
  - PLEURITIC PAIN [None]
  - SPUTUM PURULENT [None]
  - HALLUCINATION [None]
  - COUGH [None]
  - CARDIAC FAILURE [None]
  - TUBERCULOSIS [None]
  - ASTHENIA [None]
  - BRONCHOPULMONARY ASPERGILLOSIS [None]
  - OLIGURIA [None]
  - ORTHOPNOEA [None]
